FAERS Safety Report 15102625 (Version 6)
Quarter: 2020Q4

REPORT INFORMATION
  Report Type: Spontaneous
  Country: US (occurrence: US)
  Receive Date: 20180703
  Receipt Date: 20201214
  Transmission Date: 20210113
  Serious: Yes (Hospitalization, Other)
  Sender: FDA-Public Use
  Company Number: US-SA-2018SA173994

PATIENT

DRUGS (3)
  1. NUEDEXTA [Concomitant]
     Active Substance: DEXTROMETHORPHAN HYDROBROMIDE\QUINIDINE SULFATE
  2. DUPIXENT [Suspect]
     Active Substance: DUPILUMAB
     Indication: DERMATITIS ATOPIC
     Dosage: 300 MG, QOW
     Route: 058
     Dates: start: 20180607
  3. CYMBALTA [Concomitant]
     Active Substance: DULOXETINE HYDROCHLORIDE
     Route: 065

REACTIONS (9)
  - Blood iron decreased [Recovering/Resolving]
  - SARS-CoV-2 test positive [Recovering/Resolving]
  - Rash [Unknown]
  - Haemoglobin decreased [Recovering/Resolving]
  - Traumatic haematoma [Recovering/Resolving]
  - COVID-19 [Recovering/Resolving]
  - Headache [Recovered/Resolved]
  - Fall [Recovering/Resolving]
  - Dementia [Unknown]

NARRATIVE: CASE EVENT DATE: 20180613
